FAERS Safety Report 24018388 (Version 1)
Quarter: 2024Q2

REPORT INFORMATION
  Report Type: Spontaneous
  Country: US (occurrence: US)
  Receive Date: 20240627
  Receipt Date: 20240627
  Transmission Date: 20240716
  Serious: No
  Sender: FDA-Public Use
  Company Number: US-BEH-2024173759

PATIENT
  Age: 52 Year
  Sex: Female

DRUGS (54)
  1. HIZENTRA [Suspect]
     Active Substance: HUMAN IMMUNOGLOBULIN G
     Indication: Immunodeficiency
     Dosage: 14 MG, QW
     Route: 058
     Dates: start: 20220922
  2. ACETAMINOPHEN [Concomitant]
     Active Substance: ACETAMINOPHEN
  3. ACYCLOVIR [Concomitant]
     Active Substance: ACYCLOVIR
  4. ALBUTEROL [Concomitant]
     Active Substance: ALBUTEROL
  5. ALPRAZOLAM [Concomitant]
     Active Substance: ALPRAZOLAM
  6. AZITHROMYCIN [Concomitant]
     Active Substance: AZITHROMYCIN
  7. BOOSTRIX [Concomitant]
     Active Substance: TETANUS TOXOID, REDUCED DIPHTHERIA TOXOID AND ACELLULAR PERTUSSIS VACCINE, ADSORBED ANTIGENS
  8. BREO ELLIPTA [Concomitant]
     Active Substance: FLUTICASONE FUROATE\VILANTEROL TRIFENATATE
  9. BUDESONIDE [Concomitant]
     Active Substance: BUDESONIDE
  10. BUPROPION [Concomitant]
     Active Substance: BUPROPION
  11. BUSPIRONE [Concomitant]
     Active Substance: BUSPIRONE HYDROCHLORIDE
  12. BUSPIRONE [Concomitant]
     Active Substance: BUSPIRONE HYDROCHLORIDE
  13. CHLORHEXIDINE GLUCONATE [Concomitant]
     Active Substance: CHLORHEXIDINE GLUCONATE
  14. CITALOPRAM [Concomitant]
     Active Substance: CITALOPRAM\CITALOPRAM HYDROBROMIDE
  15. CYCLOBENZAPRINE [Concomitant]
     Active Substance: CYCLOBENZAPRINE
  16. DIAZEPAM [Concomitant]
     Active Substance: DIAZEPAM
  17. EPINEPHRINE [Concomitant]
     Active Substance: EPINEPHRINE
  18. ESTRADIOL [Concomitant]
     Active Substance: ESTRADIOL
  19. FLUCONAZOLE [Concomitant]
     Active Substance: FLUCONAZOLE
  20. GABAPENTIN [Concomitant]
     Active Substance: GABAPENTIN
  21. HYDROCHLOROTHIAZIDE [Concomitant]
     Active Substance: HYDROCHLOROTHIAZIDE
  22. BREO ELLIPTA [Concomitant]
     Active Substance: FLUTICASONE FUROATE\VILANTEROL TRIFENATATE
  23. BREO ELLIPTA [Concomitant]
     Active Substance: FLUTICASONE FUROATE\VILANTEROL TRIFENATATE
  24. A-HYDROCORT [Concomitant]
     Active Substance: HYDROCORTISONE SODIUM SUCCINATE
  25. HYDROMORPHON CT [Concomitant]
  26. HYDROXYZINE [Concomitant]
     Active Substance: HYDROXYZINE HYDROCHLORIDE
  27. ALBUTEROL\IPRATROPIUM [Concomitant]
     Active Substance: ALBUTEROL\IPRATROPIUM
  28. LIDOCAINE [Concomitant]
     Active Substance: LIDOCAINE
  29. LIDOCAINE [Concomitant]
     Active Substance: LIDOCAINE
  30. LORAZEPAM [Concomitant]
     Active Substance: LORAZEPAM
  31. MELOXICAM [Concomitant]
     Active Substance: MELOXICAM
  32. METHYLPREDNISOLONE [Concomitant]
     Active Substance: METHYLPREDNISOLONE
  33. MONTELUKAST [Concomitant]
     Active Substance: MONTELUKAST SODIUM
  34. NEOMYCIN AND POLYMYXIN B SULFATES AND HYDROCORTISONE [Concomitant]
     Active Substance: HYDROCORTISONE\NEOMYCIN SULFATE\POLYMYXIN B SULFATE
  35. ONDANSETRON [Concomitant]
     Active Substance: ONDANSETRON
  36. ONDANSETRON [Concomitant]
     Active Substance: ONDANSETRON
  37. OXYCODONE [Concomitant]
     Active Substance: OXYCODONE\OXYCODONE HYDROCHLORIDE
  38. PAROXETINE [Concomitant]
     Active Substance: PAROXETINE
  39. PHENTERMINE [Concomitant]
     Active Substance: PHENTERMINE
  40. PREDNISONE [Concomitant]
     Active Substance: PREDNISONE
  41. PREDNISONE [Concomitant]
     Active Substance: PREDNISONE
  42. PREGABALIN [Concomitant]
     Active Substance: PREGABALIN
  43. PREGABALIN [Concomitant]
     Active Substance: PREGABALIN
  44. PRIVIGEN [Concomitant]
     Active Substance: HUMAN IMMUNOGLOBULIN G
     Route: 065
  45. PROCHLORPERAZINE MALEATE [Concomitant]
     Active Substance: PROCHLORPERAZINE MALEATE
  46. PROMETHAZINE [Concomitant]
     Active Substance: PROMETHAZINE HYDROCHLORIDE
  47. SYMBICORT [Concomitant]
     Active Substance: BUDESONIDE\FORMOTEROL FUMARATE DIHYDRATE
  48. TRAMADOL [Concomitant]
     Active Substance: TRAMADOL\TRAMADOL HYDROCHLORIDE
  49. TRIAMCINOLONE ACETONIDE [Concomitant]
     Active Substance: TRIAMCINOLONE ACETONIDE
  50. VALACYCLOVIR [Concomitant]
     Active Substance: VALACYCLOVIR HYDROCHLORIDE
  51. VALACYCLOVIR [Concomitant]
     Active Substance: VALACYCLOVIR HYDROCHLORIDE
  52. VENLAFAXINE [Concomitant]
     Active Substance: VENLAFAXINE HYDROCHLORIDE
  53. VENLAFAXINE [Concomitant]
     Active Substance: VENLAFAXINE HYDROCHLORIDE
  54. VITAMIN D [Concomitant]
     Active Substance: VITAMIN D NOS

REACTIONS (1)
  - Limb discomfort [Not Recovered/Not Resolved]

NARRATIVE: CASE EVENT DATE: 20240531
